FAERS Safety Report 7602705-8 (Version None)
Quarter: 2011Q2

REPORT INFORMATION
  Report Type: 
  Country: None (occurrence: None)
  Receive Date: 20110630
  Receipt Date: 20110616
  Transmission Date: 20111010
  Serious: Yes (Hospitalization, Other)
  Sender: FDA-Public Use
  Company Number: US-2011-1428

PATIENT
  Age: 65 Year
  Sex: Female

DRUGS (3)
  1. NAVELBINE [Suspect]
     Indication: BREAST CANCER METASTATIC
  2. PREDNISOLONE ACETATE [Suspect]
     Indication: PRODUCT USED FOR UNKNOWN INDICATION
  3. ANTINEOPLASTIC CHEMOTHERAPY [Suspect]
     Indication: PRODUCT USED FOR UNKNOWN INDICATION

REACTIONS (11)
  - ANAEMIA [None]
  - HELICOBACTER INFECTION [None]
  - CHEST PAIN [None]
  - HYPOTENSION [None]
  - PULMONARY OEDEMA [None]
  - PYREXIA [None]
  - CHILLS [None]
  - DISCOMFORT [None]
  - GASTRIC HAEMORRHAGE [None]
  - PEPTIC ULCER [None]
  - SEPSIS SYNDROME [None]
